FAERS Safety Report 7478398-X (Version None)
Quarter: 2011Q2

REPORT INFORMATION
  Report Type: 
  Country: None (occurrence: None)
  Receive Date: 20110513
  Receipt Date: 20100712
  Transmission Date: 20111010
  Serious: No
  Sender: FDA-Public Use
  Company Number: US-PFIZER INC-2010082600

PATIENT
  Age: 75 Year
  Sex: Female
  Weight: 108.84 kg

DRUGS (14)
  1. SIMVASTATIN [Concomitant]
     Indication: BLOOD CHOLESTEROL INCREASED
     Dosage: 20 MG, DAILY AT NIGHT
  2. CELEBREX [Suspect]
     Indication: ARTHRITIS
     Dosage: 200 MG, 1X/DAY
     Route: 048
     Dates: start: 20100629, end: 20100630
  3. ZOCOR [Concomitant]
     Indication: BLOOD CHOLESTEROL INCREASED
     Dosage: UNK, DAILY
  4. LASIX [Concomitant]
     Indication: HYPERTENSION
     Dosage: UNK
  5. PROTONIX [Concomitant]
     Indication: DYSPEPSIA
     Dosage: UNK MG, 1X/DAY
  6. PANTOPRAZOLE SODIUM [Concomitant]
     Indication: GASTRITIS
     Dosage: 40 MG, DAILY
  7. MICARDIS [Concomitant]
     Indication: HYPERTENSION
     Dosage: 20 MG, DAILY AT NIGHT
  8. LEVOTHYROXINE [Concomitant]
     Indication: HYPOTHYROIDISM
     Dosage: 0.2 MG, UNK
  9. CARBIDOPA + LEVODOPA [Concomitant]
     Indication: RESTLESS LEGS SYNDROME
     Dosage: 25/100 MG, UNK
  10. LEVOTHYROXINE [Concomitant]
     Indication: THYROID DISORDER
  11. FUROSEMIDE [Concomitant]
     Indication: DIURETIC THERAPY
     Dosage: 40 MG, DAILY
  12. CEPHALEXIN [Concomitant]
     Indication: IRRITABLE BOWEL SYNDROME
     Dosage: UNK
  13. ATENOLOL [Concomitant]
     Indication: HYPERTENSION
     Dosage: 50 MG, DAILY
  14. OXYBUTYNIN [Concomitant]
     Indication: BLADDER DISORDER
     Dosage: 10 MG, UNK

REACTIONS (2)
  - DIARRHOEA [None]
  - DRUG INEFFECTIVE [None]
